FAERS Safety Report 22375041 (Version 2)
Quarter: 2024Q2

REPORT INFORMATION
  Report Type: Spontaneous
  Country: FR (occurrence: FR)
  Receive Date: 20230527
  Receipt Date: 20240503
  Transmission Date: 20240715
  Serious: Yes (Death, Life-Threatening, Hospitalization, Other)
  Sender: FDA-Public Use
  Company Number: FR-AFSSAPS-TO070567

PATIENT
  Age: 74 Year
  Sex: Male

DRUGS (5)
  1. CEFTRIAXONE [Interacting]
     Active Substance: CEFTRIAXONE\CEFTRIAXONE SODIUM
     Indication: Upper respiratory tract infection
     Dosage: 2 GRAM, ONCE A DAY (STRENGTH REPORTED AS 2G/40ML)
     Route: 042
     Dates: start: 20070323, end: 20070329
  2. CIPROFLOXACIN [Interacting]
     Active Substance: CIPROFLOXACIN
     Indication: Respiratory tract infection
     Dosage: 1 GRAM, ONCE A DAY
     Route: 048
     Dates: start: 20070323, end: 20070329
  3. FLUINDIONE [Interacting]
     Active Substance: FLUINDIONE
     Indication: Product used for unknown indication
     Dosage: 10 MILLIGRAM, ONCE A DAY
     Route: 048
     Dates: end: 20070329
  4. FUROSEMIDE [Interacting]
     Active Substance: FUROSEMIDE
     Indication: Essential hypertension
     Dosage: 80 MILLIGRAM, ONCE A DAY
     Route: 048
     Dates: end: 20070329
  5. METHYLPREDNISOLONE SODIUM SUCCINATE [Interacting]
     Active Substance: METHYLPREDNISOLONE SODIUM SUCCINATE
     Indication: Product used for unknown indication
     Dosage: 40 MILLIGRAM
     Route: 042
     Dates: start: 20070323, end: 20070329

REACTIONS (4)
  - Cerebral haemorrhage [Fatal]
  - Respiratory failure [Fatal]
  - International normalised ratio increased [Fatal]
  - Drug interaction [Fatal]

NARRATIVE: CASE EVENT DATE: 20070301
